FAERS Safety Report 12362626 (Version 1)
Quarter: 2016Q2

REPORT INFORMATION
  Report Type: Spontaneous
  Country: US (occurrence: US)
  Receive Date: 20160512
  Receipt Date: 20160512
  Transmission Date: 20160815
  Serious: No
  Sender: FDA-Public Use
  Company Number: US-WARNER CHILCOTT, LLC-1052056

PATIENT
  Age: 63 Year
  Sex: Female

DRUGS (5)
  1. ACTONEL [Suspect]
     Active Substance: RISEDRONATE SODIUM
     Indication: OSTEOPOROSIS
     Route: 048
     Dates: start: 20150719, end: 20150719
  2. AZATHIOPRINE. [Concomitant]
     Active Substance: AZATHIOPRINE
  3. VITAMIN D [Concomitant]
     Active Substance: CHOLECALCIFEROL
  4. PREDNISONE. [Concomitant]
     Active Substance: PREDNISONE
  5. CENTRUM SILVER [Concomitant]
     Active Substance: MINERALS\VITAMINS

REACTIONS (6)
  - Nausea [None]
  - Asthenia [None]
  - Heart rate decreased [None]
  - Diarrhoea [None]
  - Fatigue [None]
  - Dry eye [None]
